FAERS Safety Report 5869366-X (Version None)
Quarter: 2008Q3

REPORT INFORMATION
  Report Type: 
  Country: None (occurrence: None)
  Receive Date: 20080903
  Receipt Date: 20080826
  Transmission Date: 20090109
  Serious: No
  Sender: FDA-Public Use
  Company Number: US-BOEHRINGER INGELHEIM GMBH, GERMANY-2008-BP-13595BP

PATIENT
  Sex: Female

DRUGS (4)
  1. SPIRIVA [Suspect]
     Indication: ASTHMA
     Route: 055
     Dates: start: 20080822
  2. LIPITOR [Concomitant]
     Indication: BLOOD CHOLESTEROL INCREASED
     Route: 048
     Dates: start: 19950101
  3. COMBIVENT [Concomitant]
     Indication: ASTHMA
     Route: 055
  4. TYLENOL (CAPLET) [Concomitant]
     Indication: MUSCULOSKELETAL DISCOMFORT
     Dosage: 1 TO 2 TABLETS
     Route: 048
     Dates: start: 19800101

REACTIONS (1)
  - DYSPHONIA [None]
